FAERS Safety Report 7570625-3 (Version None)
Quarter: 2011Q2

REPORT INFORMATION
  Report Type: 
  Country: None (occurrence: None)
  Receive Date: 20110624
  Receipt Date: 20110419
  Transmission Date: 20111010
  Serious: No
  Sender: FDA-Public Use
  Company Number: US-ALLERGAN-1105521US

PATIENT
  Age: 33 Year
  Sex: Female

DRUGS (2)
  1. MASCARA [Concomitant]
  2. LATISSE [Suspect]
     Indication: GROWTH OF EYELASHES
     Dosage: 1 GTT, BI-WEEKLY
     Route: 061
     Dates: start: 20101101

REACTIONS (2)
  - MUSCLE TWITCHING [None]
  - HORDEOLUM [None]
